FAERS Safety Report 7378968-3 (Version None)
Quarter: 2011Q1

REPORT INFORMATION
  Report Type: 
  Country: None (occurrence: None)
  Receive Date: 20110328
  Receipt Date: 20110324
  Transmission Date: 20110831
  Serious: Yes (Other)
  Sender: FDA-Public Use
  Company Number: US-JNJFOC-20110200355

PATIENT
  Age: 44 Year
  Sex: Male
  Weight: 274.52 kg

DRUGS (2)
  1. STELARA [Suspect]
     Indication: PRODUCT USED FOR UNKNOWN INDICATION
     Route: 058
  2. STELARA [Suspect]
     Route: 058

REACTIONS (4)
  - UPPER RESPIRATORY TRACT INFECTION [None]
  - NODULE [None]
  - BRONCHITIS [None]
  - PNEUMONIA [None]
